FAERS Safety Report 17061504 (Version 2)
Quarter: 2019Q4

REPORT INFORMATION
  Report Type: Spontaneous
  Country: US (occurrence: US)
  Receive Date: 20191121
  Receipt Date: 20191127
  Transmission Date: 20200122
  Serious: Yes (Hospitalization, Other)
  Sender: FDA-Public Use
  Company Number: US-ELI_LILLY_AND_COMPANY-US201911005550

PATIENT
  Age: 49 Year
  Sex: Female

DRUGS (7)
  1. EMGALITY [Interacting]
     Active Substance: GALCANEZUMAB-GNLM
     Dosage: 1 DOSAGE FORM
     Route: 065
     Dates: start: 20190706, end: 20190827
  2. LEVOTHYROXINE. [Concomitant]
     Active Substance: LEVOTHYROXINE
     Indication: HYPOTHYROIDISM
  3. EMGALITY [Suspect]
     Active Substance: GALCANEZUMAB-GNLM
     Indication: MIGRAINE
     Dosage: 1 DOSAGE FORM, MONTHLY (1/M)
     Route: 065
     Dates: start: 20190605
  4. LAMOTRIGINE. [Interacting]
     Active Substance: LAMOTRIGINE
     Dosage: 250 MG
     Route: 065
     Dates: end: 20190706
  5. LAMOTRIGINE. [Interacting]
     Active Substance: LAMOTRIGINE
     Dosage: 75 MG
     Route: 065
     Dates: start: 20190617
  6. LAMOTRIGINE. [Interacting]
     Active Substance: LAMOTRIGINE
     Indication: SEIZURE
     Dosage: 50 MG, BID
     Route: 065
  7. KEPPRA [Concomitant]
     Active Substance: LEVETIRACETAM
     Indication: SEIZURE

REACTIONS (56)
  - Shock [Unknown]
  - Dehydration [Unknown]
  - Speech disorder [Unknown]
  - Electrolyte imbalance [Unknown]
  - Muscle atrophy [Unknown]
  - Carbon dioxide increased [Unknown]
  - Influenza [Unknown]
  - Brain oedema [Unknown]
  - Musculoskeletal stiffness [Unknown]
  - Eosinophil count decreased [Unknown]
  - Drug interaction [Unknown]
  - Central nervous system lesion [Unknown]
  - Vasogenic cerebral oedema [Not Recovered/Not Resolved]
  - Gingival bleeding [Unknown]
  - Fatigue [Unknown]
  - Pain [Unknown]
  - Neck pain [Unknown]
  - Myalgia [Unknown]
  - Blood urea decreased [Unknown]
  - Genital haemorrhage [Unknown]
  - Movement disorder [Unknown]
  - Nausea [Unknown]
  - Migraine with aura [Unknown]
  - Tic [Unknown]
  - Head discomfort [Unknown]
  - Mouth haemorrhage [Unknown]
  - Swelling [Unknown]
  - Extrapyramidal disorder [Unknown]
  - Yawning [Unknown]
  - Chest pain [Unknown]
  - Chest discomfort [Unknown]
  - Lymphadenopathy [Unknown]
  - Dyspnoea [Unknown]
  - Epistaxis [Unknown]
  - Eye haemorrhage [Unknown]
  - Pharyngeal swelling [Unknown]
  - Axillary pain [Unknown]
  - Diplopia [Unknown]
  - Speech disorder [Recovered/Resolved]
  - Disturbance in attention [Unknown]
  - Somnolence [Unknown]
  - Diarrhoea [Unknown]
  - Contusion [Unknown]
  - Blood chloride increased [Unknown]
  - Pain in jaw [Unknown]
  - Drug hypersensitivity [Unknown]
  - Aphasia [Unknown]
  - Rhinitis [Unknown]
  - Nasopharyngitis [Unknown]
  - Blood count abnormal [Unknown]
  - Weight decreased [Unknown]
  - Skin discolouration [Unknown]
  - Swelling face [Unknown]
  - Vulvovaginal rash [Unknown]
  - Visual impairment [Unknown]
  - Rash [Unknown]

NARRATIVE: CASE EVENT DATE: 20190606
